FAERS Safety Report 7542633-X (Version None)
Quarter: 2011Q2

REPORT INFORMATION
  Report Type: 
  Country: None (occurrence: None)
  Receive Date: 20110613
  Receipt Date: 20110606
  Transmission Date: 20111010
  Serious: Yes (Life-Threatening, Hospitalization)
  Sender: FDA-Public Use
  Company Number: US-ROCHE-781767

PATIENT
  Sex: Female

DRUGS (3)
  1. CARBOPLATIN [Suspect]
     Indication: OVARIAN EPITHELIAL CANCER
     Dosage: DOSE: AUC6 ON DAY 1 OF EVERY 3 WEEK CYCLE
     Route: 042
     Dates: start: 20110511
  2. BEVACIZUMAB [Suspect]
     Indication: OVARIAN EPITHELIAL CANCER
     Dosage: FREQUENCY: OVER 30-90 MINS ON DAY 0NE OF EVERY 3 WEEK CYCLE. LAST DOSE PRIOR TO SAE: 10 AUGUST 2010
     Route: 042
     Dates: start: 20100511
  3. PACLITAXEL [Suspect]
     Indication: OVARIAN EPITHELIAL CANCER
     Dosage: OVER 1 HOUR ON DAY 1, 8 AND 15 OF EVERY 3 WEEKS CYCLE.
     Route: 042
     Dates: start: 20110511

REACTIONS (5)
  - DYSPNOEA [None]
  - MUSCULAR WEAKNESS [None]
  - HAEMOGLOBIN DECREASED [None]
  - SMALL INTESTINAL HAEMORRHAGE [None]
  - PLATELET COUNT DECREASED [None]
